FAERS Safety Report 18455932 (Version 1)
Quarter: 2020Q4

REPORT INFORMATION
  Report Type: Spontaneous
  Country: IN (occurrence: IN)
  Receive Date: 20201103
  Receipt Date: 20201103
  Transmission Date: 20210114
  Serious: Yes (Other)
  Sender: FDA-Public Use
  Company Number: IN-SCIEGEN-2020SCILIT00369

PATIENT
  Age: 24 Year
  Sex: Male

DRUGS (4)
  1. CHLORHEXIDINE [Interacting]
     Active Substance: CHLORHEXIDINE
     Indication: GINGIVAL HYPERTROPHY
     Route: 048
  2. CHLORHEXIDINE [Interacting]
     Active Substance: CHLORHEXIDINE
     Indication: GINGIVAL HYPERTROPHY
     Route: 048
  3. LAMOTRIGINE TABLETS [Suspect]
     Active Substance: LAMOTRIGINE
     Indication: EPILEPSY
     Route: 065
  4. IBUPROFEN. [Interacting]
     Active Substance: IBUPROFEN
     Indication: GINGIVAL HYPERTROPHY
     Route: 065

REACTIONS (1)
  - Gingival hypertrophy [Recovered/Resolved]
